FAERS Safety Report 4825583-9 (Version None)
Quarter: 2005Q4

REPORT INFORMATION
  Report Type: 
  Country: None (occurrence: None)
  Receive Date: 20051111
  Receipt Date: 20050923
  Transmission Date: 20060501
  Serious: No
  Sender: FDA-Public Use
  Company Number: US-GLAXOSMITHKLINE-A0575701A

PATIENT
  Age: 83 Year
  Sex: Male

DRUGS (8)
  1. AVODART [Suspect]
     Indication: BENIGN PROSTATIC HYPERPLASIA
     Dosage: .5CAP PER DAY
     Route: 048
  2. UROXATRAL [Concomitant]
  3. ENALAPRIL [Concomitant]
  4. FUROSEMIDE [Concomitant]
  5. NORVASC [Concomitant]
  6. POTASSIUM CHLORIDE [Concomitant]
  7. ATENOLOL [Concomitant]
  8. LIPITOR [Concomitant]

REACTIONS (3)
  - DRUG INEFFECTIVE [None]
  - HYPERHIDROSIS [None]
  - POLLAKIURIA [None]
